FAERS Safety Report 4567558-3 (Version None)
Quarter: 2005Q1

REPORT INFORMATION
  Report Type: 
  Country: None (occurrence: None)
  Receive Date: 20050127
  Receipt Date: 20050118
  Transmission Date: 20050727
  Serious: Yes (Other)
  Sender: FDA-Public Use
  Company Number: 2002-08-0594

PATIENT
  Age: 44 Year
  Sex: Female

DRUGS (4)
  1. INTRON A [Suspect]
     Indication: HEPATITIS ACUTE
     Dosage: 5 MG QD-TIW SUBCUTANEOUS; SEE IMAGE
     Route: 058
     Dates: start: 19990903, end: 19990924
  2. INTRON A [Suspect]
     Indication: HEPATITIS C
     Dosage: 5 MG QD-TIW SUBCUTANEOUS; SEE IMAGE
     Route: 058
     Dates: start: 19990903, end: 19990924
  3. INTRON A [Suspect]
     Indication: HEPATITIS ACUTE
     Dosage: 5 MG QD-TIW SUBCUTANEOUS; SEE IMAGE
     Route: 058
     Dates: start: 19990925, end: 20000218
  4. INTRON A [Suspect]
     Indication: HEPATITIS C
     Dosage: 5 MG QD-TIW SUBCUTANEOUS; SEE IMAGE
     Route: 058
     Dates: start: 19990925, end: 20000218

REACTIONS (11)
  - ANOREXIA [None]
  - CEREBRAL DISORDER [None]
  - COGNITIVE DISORDER [None]
  - CONDITION AGGRAVATED [None]
  - COORDINATION ABNORMAL [None]
  - DEPRESSION [None]
  - FAMILY STRESS [None]
  - FATIGUE [None]
  - HEADACHE [None]
  - HYPOGLYCAEMIA [None]
  - WEIGHT DECREASED [None]
